FAERS Safety Report 8630319 (Version 3)
Quarter: 2015Q4

REPORT INFORMATION
  Report Type: Report from Study
  Country: SE (occurrence: SE)
  Receive Date: 20120622
  Receipt Date: 20151104
  Transmission Date: 20160305
  Serious: Yes (Other)
  Sender: FDA-Public Use
  Company Number: SE-ROCHE-1076577

PATIENT

DRUGS (2)
  1. ATACICEPT [Suspect]
     Active Substance: ATACICEPT
     Indication: RHEUMATOID ARTHRITIS
     Dosage: FOR 25 WEEKS.
     Route: 058
  2. RITUXIMAB [Suspect]
     Active Substance: RITUXIMAB
     Indication: RHEUMATOID ARTHRITIS
     Dosage: TWO DOSES AT WEEKS 1 AND 3
     Route: 042

REACTIONS (12)
  - Ventricular fibrillation [Recovered/Resolved]
  - Visual impairment [Recovered/Resolved]
  - Transient ischaemic attack [Unknown]
  - Hypersensitivity [Unknown]
  - Joint capsule rupture [Recovered/Resolved]
  - Gastritis [Unknown]
  - Arthropathy [Recovered/Resolved]
  - Ruptured cerebral aneurysm [Unknown]
  - Cardiac arrest [Recovered/Resolved]
  - Atrial fibrillation [Recovered/Resolved]
  - Pelvic fracture [Recovered/Resolved]
  - Muscular weakness [Recovered/Resolved]
